FAERS Safety Report 9045688 (Version 1)
Quarter: 2013Q1

REPORT INFORMATION
  Report Type: Report from Study
  Country: US (occurrence: US)
  Receive Date: 20130131
  Receipt Date: 20130131
  Transmission Date: 20140127
  Serious: No
  Sender: FDA-Public Use
  Company Number: US-ABBOTT-12P-163-1013070-00

PATIENT
  Age: 27 None
  Sex: Female
  Weight: 56.75 kg

DRUGS (4)
  1. HUMIRA [Suspect]
     Indication: CROHN^S DISEASE
     Dosage: LOADING DOSE
     Dates: start: 20121120
  2. PENTASA [Concomitant]
     Indication: CROHN^S DISEASE
  3. VITAMIN B12 [Concomitant]
     Indication: VITAMIN B12 DEFICIENCY
  4. COLESTRAMINE [Concomitant]
     Indication: BLOOD CHOLESTEROL INCREASED

REACTIONS (2)
  - Injection site bruising [Not Recovered/Not Resolved]
  - Injection site pain [Recovered/Resolved]
